FAERS Safety Report 11883508 (Version 3)
Quarter: 2020Q3

REPORT INFORMATION
  Report Type: Report from Study
  Country: FR (occurrence: FR)
  Receive Date: 20151231
  Receipt Date: 20200909
  Transmission Date: 20201102
  Serious: Yes (Hospitalization, Other)
  Sender: FDA-Public Use
  Company Number: PHHO2013FR001861

PATIENT
  Age: 34 Year
  Sex: Male
  Weight: 70 kg

DRUGS (9)
  1. DOXYCYCLINE. [Concomitant]
     Active Substance: DOXYCYCLINE
     Indication: CONJUNCTIVITIS
     Dosage: 100 MG, QD
     Route: 065
     Dates: start: 20120804, end: 20120814
  2. NEXEN [Concomitant]
     Active Substance: NIMESULIDE
     Indication: PRODUCT USED FOR UNKNOWN INDICATION
     Dosage: 200 MG, PRN
     Route: 065
  3. PROPECIA [Concomitant]
     Active Substance: FINASTERIDE
     Indication: ALOPECIA
     Dosage: UNK
     Route: 065
     Dates: start: 201006
  4. ALDARA [Concomitant]
     Active Substance: IMIQUIMOD
     Indication: PAPILLOMA
     Dosage: 1 APPLICATION/WEEK
     Route: 065
     Dates: start: 201209
  5. ALDARA [Concomitant]
     Active Substance: IMIQUIMOD
     Indication: ANOGENITAL WARTS
  6. STERDEX [Concomitant]
     Active Substance: DEXAMETHASONE\OXYTETRACYCLINE
     Indication: CONJUNCTIVITIS
     Route: 065
  7. LEXOMIL [Concomitant]
     Active Substance: BROMAZEPAM
     Indication: ANXIETY
     Dosage: 1/4
     Route: 065
     Dates: start: 201009, end: 201102
  8. OFLOCET [Concomitant]
     Active Substance: OFLOXACIN
     Indication: URINARY TRACT INFECTION
     Dosage: UNK
     Route: 065
     Dates: end: 20120915
  9. SECUKINUMAB. [Suspect]
     Active Substance: SECUKINUMAB
     Indication: ANKYLOSING SPONDYLITIS
     Dosage: 75 MG, UNK
     Route: 058
     Dates: start: 20120509

REACTIONS (5)
  - Pancytopenia [Recovering/Resolving]
  - Lymphadenopathy [Recovered/Resolved]
  - Splenomegaly [Recovered/Resolved]
  - Pyrexia [Recovered/Resolved]
  - B-cell lymphoma [Recovered/Resolved]

NARRATIVE: CASE EVENT DATE: 20130104
